FAERS Safety Report 11428001 (Version 1)
Quarter: 2015Q3

REPORT INFORMATION
  Report Type: Spontaneous
  Country: US (occurrence: None)
  Receive Date: 20150827
  Receipt Date: 20150827
  Transmission Date: 20151125
  Serious: Yes (Other)
  Sender: FDA-Public Use
  Company Number: None

PATIENT
  Age: 18 Year
  Sex: Female
  Weight: 43 kg

DRUGS (15)
  1. DIAZEPAM. [Concomitant]
     Active Substance: DIAZEPAM
  2. OLANZAPINE. [Concomitant]
     Active Substance: OLANZAPINE
  3. FLUCONAZOLE 400 MG [Suspect]
     Active Substance: FLUCONAZOLE
     Indication: URINARY TRACT INFECTION
     Dosage: 3 DOSES?IV AND ORAL 4/13 TO 4/15
  4. XOPENEX [Concomitant]
     Active Substance: LEVALBUTEROL HYDROCHLORIDE
  5. SYMBICORT [Concomitant]
     Active Substance: BUDESONIDE\FORMOTEROL FUMARATE DIHYDRATE
  6. PEPCID [Concomitant]
     Active Substance: FAMOTIDINE
  7. BACLOFEN. [Concomitant]
     Active Substance: BACLOFEN
  8. NORTRIPTYLINE [Concomitant]
     Active Substance: NORTRIPTYLINE
  9. ALLEGRA [Concomitant]
     Active Substance: FEXOFENADINE HYDROCHLORIDE
  10. AUGMENTIN [Concomitant]
     Active Substance: AMOXICILLIN\CLAVULANATE POTASSIUM
  11. METHADONE [Suspect]
     Active Substance: METHADONE HYDROCHLORIDE
     Indication: PAIN
     Dosage: 20/30/26 MG
     Route: 048
  12. OXYBUTYNIN [Concomitant]
     Active Substance: OXYBUTYNIN
  13. GENTAMICIN. [Concomitant]
     Active Substance: GENTAMICIN
  14. METOPROLOL [Concomitant]
     Active Substance: METOPROLOL
  15. PREGABALIN. [Concomitant]
     Active Substance: PREGABALIN

REACTIONS (4)
  - Hypotension [None]
  - Urinary tract infection [None]
  - Toxicity to various agents [None]
  - Depressed level of consciousness [None]

NARRATIVE: CASE EVENT DATE: 20150415
